FAERS Safety Report 21781817 (Version 1)
Quarter: 2022Q4

REPORT INFORMATION
  Report Type: Spontaneous
  Country: ES (occurrence: ES)
  Receive Date: 20221227
  Receipt Date: 20221227
  Transmission Date: 20230113
  Serious: Yes (Hospitalization, Other)
  Sender: FDA-Public Use
  Company Number: None

PATIENT
  Age: 75 Year
  Sex: Male

DRUGS (4)
  1. EMPAGLIFLOZIN [Suspect]
     Active Substance: EMPAGLIFLOZIN
     Indication: Diabetes mellitus
     Route: 048
     Dates: start: 20220608, end: 20220710
  2. VORTIOXETINE [Suspect]
     Active Substance: VORTIOXETINE
     Indication: Depression
     Route: 048
     Dates: start: 20220609, end: 20220710
  3. Ulunar Breezhaler 85 microgramos/43 microgramos polvo para inhalacion [Concomitant]
     Indication: Bronchitis chronic
     Dosage: 1.0 CAPS EVERY 24 H OTHER ROUTE
     Dates: start: 20160319
  4. SALBUTAMOL SANDOZ 100 microgramos/DOSIS SUSPENSION PARA INHALACION EN [Concomitant]
     Indication: Bronchitis chronic
     Dosage: VIA OTHER ROUTE
     Dates: start: 20130204

REACTIONS (2)
  - Hepatocellular injury [Recovered/Resolved]
  - Hepatic encephalopathy [Recovered/Resolved]

NARRATIVE: CASE EVENT DATE: 20220709
